FAERS Safety Report 18373792 (Version 1)
Quarter: 2020Q4

REPORT INFORMATION
  Report Type: Spontaneous
  Country: CA (occurrence: CA)
  Receive Date: 20201012
  Receipt Date: 20201012
  Transmission Date: 20210114
  Serious: Yes (Hospitalization)
  Sender: FDA-Public Use
  Company Number: CA-JNJFOC-20201005004

PATIENT
  Age: 40 Year
  Sex: Male

DRUGS (4)
  1. INFLIXIMAB, RECOMBINANT [Suspect]
     Active Substance: INFLIXIMAB
     Indication: PRODUCT USED FOR UNKNOWN INDICATION
     Route: 042
  2. MERCAPTOPURINE. [Concomitant]
     Active Substance: MERCAPTOPURINE
     Route: 065
  3. PREDNISONE. [Concomitant]
     Active Substance: PREDNISONE
     Route: 065
  4. SOLU-MEDROL [Concomitant]
     Active Substance: METHYLPREDNISOLONE SODIUM SUCCINATE
     Route: 042

REACTIONS (13)
  - Abdominal pain [Recovered/Resolved]
  - Weight increased [Recovered/Resolved]
  - Infusion site erythema [Recovered/Resolved]
  - Intestinal obstruction [Recovered/Resolved]
  - Body temperature decreased [Recovered/Resolved]
  - Inappropriate schedule of product administration [Recovered/Resolved]
  - Infusion site pruritus [Recovered/Resolved]
  - Off label use [Recovered/Resolved]
  - Insomnia [Recovered/Resolved]
  - Blood pressure decreased [Recovered/Resolved]
  - Constipation [Recovered/Resolved]
  - Intentional product use issue [Recovered/Resolved]
  - Condition aggravated [Recovered/Resolved]
